FAERS Safety Report 12865941 (Version 1)
Quarter: 2016Q4

REPORT INFORMATION
  Report Type: Spontaneous
  Country: None (occurrence: US)
  Receive Date: 20161019
  Receipt Date: 20161019
  Transmission Date: 20170207
  Serious: Yes (Hospitalization)
  Sender: FDA-Public Use
  Company Number: None

PATIENT
  Age: 71 Year
  Sex: Female
  Weight: 63.56 kg

DRUGS (2)
  1. CAPECITABINE. [Suspect]
     Active Substance: CAPECITABINE
     Indication: PANCREATIC CARCINOMA
     Route: 048
  2. EBRT (RADIATION) [Suspect]
     Active Substance: RADIATION THERAPY
     Dosage: QOD EXTERNAL BEAM RADIATION THERAPY

REACTIONS (5)
  - Duodenal stenosis [None]
  - Hypophagia [None]
  - Vomiting [None]
  - Biliary dilatation [None]
  - Nausea [None]

NARRATIVE: CASE EVENT DATE: 20161003
